FAERS Safety Report 4385401-2 (Version None)
Quarter: 2004Q2

REPORT INFORMATION
  Report Type: 
  Country: None (occurrence: None)
  Receive Date: 20040622
  Receipt Date: 20040614
  Transmission Date: 20050107
  Serious: Yes (Hospitalization)
  Sender: FDA-Public Use
  Company Number: STA-AE-04-MTX-266

PATIENT
  Age: 5 Year
  Sex: Male

DRUGS (4)
  1. METHOTREXATE [Suspect]
     Indication: JUVENILE ARTHRITIS
     Dosage: 15 MG 1X PER 1 WK, ORAL
     Route: 048
     Dates: start: 20010912
  2. CYCLOSPORINE [Concomitant]
  3. NAPROXEN [Concomitant]
  4. PREDNISOLONE [Concomitant]

REACTIONS (1)
  - MENINGITIS VIRAL [None]
